FAERS Safety Report 4834915-7 (Version None)
Quarter: 2005Q4

REPORT INFORMATION
  Report Type: 
  Country: None (occurrence: None)
  Receive Date: 20051115
  Receipt Date: 20051102
  Transmission Date: 20060501
  Serious: Yes (Hospitalization)
  Sender: FDA-Public Use
  Company Number: 219142

PATIENT
  Age: 77 Year
  Sex: Female

DRUGS (17)
  1. HERCEPTIN [Suspect]
     Indication: BREAST CANCER METASTATIC
     Dosage: 360 MG, 1/ WEEK, INTRAVENOUS
     Route: 042
     Dates: start: 20050930, end: 20051008
  2. PACLITAXEL [Suspect]
     Indication: BREAST CANCER METASTATIC
     Dosage: 160 MG, 1/WEEK, INTRAVENOUS
     Route: 042
     Dates: start: 20050930, end: 20051008
  3. CARBOPLATIN [Suspect]
     Indication: BREAST CANCER METASTATIC
     Dosage: 200 MG, 1/WEEK, INTRAVENOUS
     Route: 042
     Dates: start: 20050930, end: 20051008
  4. VITAMIN B6 [Concomitant]
  5. CALCIUM (CALCIUM NOS) [Concomitant]
  6. VITAMIN D (CHOLECALCIFEROL) [Concomitant]
  7. BREWER'S YEAST (BREWER'S YEAST) [Concomitant]
  8. BOVINE COLOSTRUM (GLOBULIN, IMMUNE (BOVINE)) [Concomitant]
  9. ASTRAGALUS (ASTRAGALUS MEMBRANACEUS) [Concomitant]
  10. WARFARIN SODIUM [Concomitant]
  11. TYLENOL (ACETAMINOPHEN) [Concomitant]
  12. DEXAMETHASONE [Concomitant]
  13. PROCHLORPERAZINE MALEATE [Concomitant]
  14. VASOTEC [Concomitant]
  15. LORAZEPAM [Concomitant]
  16. METOPROLOL (METHOPROLOL TARTRATE) [Concomitant]
  17. BACTRIM DS [Concomitant]

REACTIONS (4)
  - HAEMATOCRIT DECREASED [None]
  - HAEMOGLOBIN DECREASED [None]
  - HYPERTENSIVE CRISIS [None]
  - RECTAL HAEMORRHAGE [None]
